FAERS Safety Report 7714001-9 (Version None)
Quarter: 2011Q3

REPORT INFORMATION
  Report Type: 
  Country: None (occurrence: None)
  Receive Date: 20110826
  Receipt Date: 20110811
  Transmission Date: 20111222
  Serious: Yes (Death)
  Sender: FDA-Public Use
  Company Number: CA-WATSON-2011-13331

PATIENT
  Sex: Male
  Weight: 3.593 kg

DRUGS (1)
  1. ALLOPURINOL [Suspect]
     Indication: MATERNAL EXPOSURE DURING PREGNANCY
     Dosage: 300 MG, DAILY
     Route: 064

REACTIONS (17)
  - CONGENITAL ANOMALY [None]
  - MICROPHTHALMOS [None]
  - CONGENITAL JAW MALFORMATION [None]
  - EAR MALFORMATION [None]
  - CONGENITAL DIAPHRAGMATIC HERNIA [None]
  - CONGENITAL CENTRAL NERVOUS SYSTEM ANOMALY [None]
  - SPLEEN MALFORMATION [None]
  - CARDIOPULMONARY FAILURE [None]
  - PULMONARY APLASIA [None]
  - CLEFT LIP AND PALATE [None]
  - MATERNAL EXPOSURE DURING PREGNANCY [None]
  - OPTIC NERVE HYPOPLASIA [None]
  - CONGENITAL EYE DISORDER [None]
  - HYPERTELORISM OF ORBIT [None]
  - EXTERNAL AUDITORY CANAL ATRESIA [None]
  - KIDNEY MALFORMATION [None]
  - CRYPTORCHISM [None]
